FAERS Safety Report 18569056 (Version 1)
Quarter: 2020Q4

REPORT INFORMATION
  Report Type: Spontaneous
  Country: JP (occurrence: JP)
  Receive Date: 20201202
  Receipt Date: 20201202
  Transmission Date: 20210114
  Serious: Yes (Other)
  Sender: FDA-Public Use
  Company Number: NVSJ2020JP012632

PATIENT
  Sex: Male

DRUGS (3)
  1. ULTIBRO INHALATION CAPSULES [Suspect]
     Active Substance: GLYCOPYRRONIUM\INDACATEROL
     Indication: CHRONIC OBSTRUCTIVE PULMONARY DISEASE
     Dosage: UNK
     Route: 055
  2. BLADDERON [Suspect]
     Active Substance: FLAVOXATE
     Indication: MICTURITION FREQUENCY DECREASED
     Route: 048
  3. SILODOSIN. [Concomitant]
     Active Substance: SILODOSIN
     Indication: PRODUCT USED FOR UNKNOWN INDICATION
     Route: 065

REACTIONS (2)
  - Product use issue [Unknown]
  - Urinary retention [Unknown]

NARRATIVE: CASE EVENT DATE: 2020
